FAERS Safety Report 9637500 (Version 1)
Quarter: 2013Q4

REPORT INFORMATION
  Report Type: Report from Study
  Country: US (occurrence: US)
  Receive Date: 20131022
  Receipt Date: 20131022
  Transmission Date: 20140711
  Serious: Yes (Hospitalization)
  Sender: FDA-Public Use
  Company Number: US-JNJFOC-20131009430

PATIENT
  Sex: Female
  Weight: 45 kg

DRUGS (1)
  1. REMICADE [Suspect]
     Indication: CROHN^S DISEASE
     Dosage: ANTICIPATED INFLIXIMAB DOSAGE PLAN WAS 300MG.
     Route: 042

REACTIONS (2)
  - Crohn^s disease [Unknown]
  - Fistula [Unknown]
